FAERS Safety Report 14298371 (Version 1)
Quarter: 2017Q4

REPORT INFORMATION
  Report Type: Spontaneous
  Country: US (occurrence: US)
  Receive Date: 20171215
  Receipt Date: 20171215
  Transmission Date: 20180321
  Serious: No
  Sender: FDA-Public Use
  Company Number: None

PATIENT
  Age: 93 Year
  Sex: Female

DRUGS (1)
  1. OTEZLA [Suspect]
     Active Substance: APREMILAST
     Indication: PSORIASIS
     Route: 048

REACTIONS (10)
  - Tenderness [None]
  - Alopecia [None]
  - Weight decreased [None]
  - Hip fracture [None]
  - Asthenia [None]
  - Arthralgia [None]
  - Pruritus [None]
  - Limb discomfort [None]
  - Breast enlargement [None]
  - Skin fragility [None]
